FAERS Safety Report 5582992-0 (Version None)
Quarter: 2008Q1

REPORT INFORMATION
  Report Type: 
  Country: None (occurrence: None)
  Receive Date: 20080107
  Receipt Date: 20071218
  Transmission Date: 20080703
  Serious: Yes (Death, Hospitalization)
  Sender: FDA-Public Use
  Company Number: KR-GILEAD-E2B_00000040

PATIENT
  Age: 68 Year
  Sex: Female

DRUGS (8)
  1. HEPSERA [Suspect]
     Indication: HEPATITIS B
     Dosage: 10MG PER DAY
     Route: 048
     Dates: start: 20070731, end: 20071017
  2. ALBUMIN (HUMAN) [Concomitant]
     Dosage: 100ML PER DAY
     Route: 042
     Dates: start: 20070731, end: 20070731
  3. ITOPRIDE [Concomitant]
     Dosage: 150MG PER DAY
     Route: 048
     Dates: start: 20070731, end: 20070917
  4. RANITIDINE [Concomitant]
     Dosage: 2TAB PER DAY
     Route: 048
     Dates: start: 20070731, end: 20071017
  5. SUCRALFATE [Concomitant]
     Route: 048
     Dates: start: 20070731, end: 20070917
  6. SPIRONOLACTONE [Concomitant]
     Dosage: 2TAB PER DAY
     Route: 048
     Dates: start: 20070731, end: 20070917
  7. DRIED FERROUS SULFATE [Concomitant]
     Dosage: 2TAB PER DAY
     Route: 048
     Dates: start: 20070731, end: 20070917
  8. VITAMIN B COMPLEX CAP [Concomitant]
     Dosage: 1TAB PER DAY
     Route: 048
     Dates: start: 20070731, end: 20070917

REACTIONS (2)
  - FEMORAL NECK FRACTURE [None]
  - HEPATIC NEOPLASM MALIGNANT [None]
